FAERS Safety Report 5226018-7 (Version None)
Quarter: 2007Q1

REPORT INFORMATION
  Report Type: 
  Country: None (occurrence: None)
  Receive Date: 20070129
  Receipt Date: 20070116
  Transmission Date: 20070707
  Serious: Yes (Hospitalization, Other)
  Sender: FDA-Public Use
  Company Number: A-US2007-14013

PATIENT
  Age: 64 Year
  Sex: Female

DRUGS (2)
  1. TRACLEER [Suspect]
     Indication: PULMONARY HYPERTENSION
     Dosage: ORAL
     Route: 048
     Dates: end: 20061201
  2. ANASTRAZOLE (ANASTRAZOLE) [Concomitant]

REACTIONS (25)
  - ACUTE PRERENAL FAILURE [None]
  - AMMONIA ABNORMAL [None]
  - ASPARTATE AMINOTRANSFERASE INCREASED [None]
  - BLOOD ALBUMIN ABNORMAL [None]
  - BLOOD ALKALINE PHOSPHATASE INCREASED [None]
  - BLOOD BICARBONATE ABNORMAL [None]
  - BLOOD BILIRUBIN INCREASED [None]
  - BLOOD CHLORIDE DECREASED [None]
  - BLOOD CREATININE INCREASED [None]
  - BLOOD ELECTROLYTES ABNORMAL [None]
  - BLOOD GLUCOSE INCREASED [None]
  - BLOOD SODIUM DECREASED [None]
  - BLOOD UREA INCREASED [None]
  - CARDIAC FAILURE CONGESTIVE [None]
  - CONFUSIONAL STATE [None]
  - DIARRHOEA [None]
  - HEPATIC CONGESTION [None]
  - HEPATIC FAILURE [None]
  - HYPERALDOSTERONISM [None]
  - HYPOKALAEMIA [None]
  - HYPOMAGNESAEMIA [None]
  - LIVER FUNCTION TEST ABNORMAL [None]
  - METABOLIC ALKALOSIS [None]
  - PROTEIN TOTAL DECREASED [None]
  - SUICIDAL IDEATION [None]
